FAERS Safety Report 14179798 (Version 1)
Quarter: 2017Q4

REPORT INFORMATION
  Report Type: Spontaneous
  Country: US (occurrence: US)
  Receive Date: 20171110
  Receipt Date: 20171110
  Transmission Date: 20180321
  Serious: No
  Sender: FDA-Public Use
  Company Number: US-TEIKOKU PHARMA USA-TPU2017-00669

PATIENT
  Sex: Female

DRUGS (1)
  1. LIDOCAINE PATCH [Suspect]
     Active Substance: LIDOCAINE
     Indication: HERPES ZOSTER
     Dosage: 1 PATCH ON BACK
     Route: 061

REACTIONS (4)
  - Drug ineffective [Not Recovered/Not Resolved]
  - Insomnia [Unknown]
  - Suicidal ideation [Unknown]
  - Application site reaction [Unknown]
